FAERS Safety Report 5668695-2 (Version None)
Quarter: 2008Q1

REPORT INFORMATION
  Report Type: 
  Country: None (occurrence: None)
  Receive Date: 20080316
  Receipt Date: 20080306
  Transmission Date: 20080703
  Serious: Yes (Death)
  Sender: FDA-Public Use
  Company Number: BR-ABBOTT-08P-020-0439500-00

PATIENT
  Age: 27 Year
  Sex: Female
  Weight: 62 kg

DRUGS (3)
  1. SIBUTRAMINE [Suspect]
     Indication: DRUG USE FOR UNKNOWN INDICATION
  2. DIETHYLPROPION HCL [Concomitant]
     Indication: DRUG USE FOR UNKNOWN INDICATION
  3. BUPROPION HCL [Concomitant]
     Indication: EX-SMOKER

REACTIONS (2)
  - OVERDOSE [None]
  - POISONING [None]
